FAERS Safety Report 16285785 (Version 1)
Quarter: 2019Q2

REPORT INFORMATION
  Report Type: Spontaneous
  Country: FR (occurrence: FR)
  Receive Date: 20190508
  Receipt Date: 20190508
  Transmission Date: 20190711
  Serious: Yes (Other)
  Sender: FDA-Public Use
  Company Number: FR-ASTRAZENECA-2019SE37081

PATIENT
  Age: 899 Month
  Sex: Female

DRUGS (1)
  1. LYNPARZA [Suspect]
     Active Substance: OLAPARIB
     Route: 048
     Dates: start: 20180223, end: 201902

REACTIONS (2)
  - Therapy cessation [Unknown]
  - Disease progression [Unknown]

NARRATIVE: CASE EVENT DATE: 201902
